FAERS Safety Report 24382658 (Version 2)
Quarter: 2024Q4

REPORT INFORMATION
  Report Type: Spontaneous
  Country: DE (occurrence: DE)
  Receive Date: 20241001
  Receipt Date: 20241105
  Transmission Date: 20250114
  Serious: No
  Sender: JOHNSON AND JOHNSON
  Company Number: DE-BAYER-2024A138540

PATIENT
  Age: 88 Year
  Sex: Male

DRUGS (1)
  1. XARELTO [Suspect]
     Active Substance: RIVAROXABAN
     Indication: Atrial fibrillation
     Dosage: 20 MG
     Route: 048
     Dates: start: 2018

REACTIONS (1)
  - Pericoronitis [Recovering/Resolving]

NARRATIVE: CASE EVENT DATE: 20240801
